FAERS Safety Report 7166548-4 (Version None)
Quarter: 2010Q4

REPORT INFORMATION
  Report Type: 
  Country: None (occurrence: None)
  Receive Date: 20101202
  Receipt Date: 20100427
  Transmission Date: 20110411
  Serious: Yes (Death)
  Sender: FDA-Public Use
  Company Number: PL-000342

PATIENT
  Sex: Female
  Weight: 40 kg

DRUGS (7)
  1. NAGLAZYME [Suspect]
     Indication: MUCOPOLYSACCHARIDOSIS VI
     Dosage: (40 MG, INTRAVENOUS DRIP)
     Route: 041
     Dates: start: 20100330, end: 20100412
  2. FUROSEMIDE [Concomitant]
  3. VIVACOR /00984501/ [Concomitant]
  4. DOPAMINE [Concomitant]
  5. PERFALGAN [Concomitant]
  6. CLEMASTINUM [Concomitant]
  7. HYDROCORTISONUM HEMISUCCINATUM [Concomitant]

REACTIONS (1)
  - DEATH [None]
